FAERS Safety Report 9062102 (Version 1)
Quarter: 2013Q1

REPORT INFORMATION
  Report Type: Spontaneous
  Country: US (occurrence: US)
  Receive Date: 20130128
  Receipt Date: 20130128
  Transmission Date: 20140127
  Serious: Yes (Other)
  Sender: FDA-Public Use
  Company Number: US-BAYER-2013-008584

PATIENT
  Age: 35 Year
  Sex: Female

DRUGS (2)
  1. MIRENA [Suspect]
     Indication: MENORRHAGIA
     Dosage: 20 MCG/24HR, CONT
     Dates: start: 201209
  2. MIRENA [Suspect]
     Indication: CONTRACEPTION

REACTIONS (5)
  - Genital haemorrhage [None]
  - Vaginal haemorrhage [None]
  - Vaginal haemorrhage [None]
  - Abdominal pain lower [Not Recovered/Not Resolved]
  - Diarrhoea [None]
